FAERS Safety Report 7580846-1 (Version None)
Quarter: 2011Q2

REPORT INFORMATION
  Report Type: 
  Country: None (occurrence: None)
  Receive Date: 20110622
  Receipt Date: 20110607
  Transmission Date: 20111010
  Serious: Yes (Death, Disabling)
  Sender: FDA-Public Use
  Company Number: 2011MA006892

PATIENT
  Age: 20 Year
  Sex: Female

DRUGS (1)
  1. CARBIDOPA AND LEVODOPA [Suspect]
     Indication: PARKINSON'S DISEASE

REACTIONS (19)
  - ATAXIA [None]
  - SACCADIC EYE MOVEMENT [None]
  - NYSTAGMUS [None]
  - BLEPHAROSPASM [None]
  - CEREBRAL ATROPHY [None]
  - DYSKINESIA [None]
  - TREMOR [None]
  - DEPRESSION [None]
  - COGNITIVE DISORDER [None]
  - DYSTONIA [None]
  - WHEELCHAIR USER [None]
  - CHOKING [None]
  - DYSARTHRIA [None]
  - CLUMSINESS [None]
  - BRADYKINESIA [None]
  - AFFECT LABILITY [None]
  - DYSPHAGIA [None]
  - PNEUMONIA ASPIRATION [None]
  - GLIOSIS [None]
